FAERS Safety Report 5627666-2 (Version None)
Quarter: 2008Q1

REPORT INFORMATION
  Report Type: 
  Country: None (occurrence: None)
  Receive Date: 20080215
  Receipt Date: 20080202
  Transmission Date: 20080703
  Serious: Yes (Hospitalization)
  Sender: FDA-Public Use
  Company Number: US-BAYER-200810517BCC

PATIENT
  Age: 61 Year
  Sex: Male
  Weight: 107 kg

DRUGS (5)
  1. ALEVE [Suspect]
     Indication: ARTHRALGIA
     Route: 048
     Dates: start: 20080117, end: 20080101
  2. NEXIUM [Concomitant]
     Dates: start: 20080201
  3. SULFAMETH-TRIMETHOPRIM [Concomitant]
     Dates: start: 20080201
  4. ASPIRIN [Concomitant]
     Dates: end: 20080201
  5. SIMVASTATIN [Concomitant]

REACTIONS (6)
  - DYSPNOEA [None]
  - FAECES DISCOLOURED [None]
  - HAEMORRHAGE [None]
  - HEART RATE INCREASED [None]
  - HYPOTENSION [None]
  - ULCER HAEMORRHAGE [None]
